FAERS Safety Report 7809041-5 (Version None)
Quarter: 2011Q4

REPORT INFORMATION
  Report Type: 
  Country: None (occurrence: None)
  Receive Date: 20111012
  Receipt Date: 20111005
  Transmission Date: 20120403
  Serious: Yes (Hospitalization)
  Sender: FDA-Public Use
  Company Number: US-SANOFI-AVENTIS-2011SA065968

PATIENT
  Age: 78 Year
  Sex: Female

DRUGS (5)
  1. COUMADIN [Concomitant]
     Dates: start: 20110901
  2. OXYGEN [Concomitant]
  3. MULTAQ [Suspect]
     Indication: ATRIAL FIBRILLATION
     Route: 048
     Dates: start: 20110901
  4. CARDIAC THERAPY [Concomitant]
  5. COUMADIN [Concomitant]
     Dates: end: 20110901

REACTIONS (2)
  - CARDIAC DISORDER [None]
  - HIATUS HERNIA [None]
